FAERS Safety Report 4926822-6 (Version None)
Quarter: 2006Q1

REPORT INFORMATION
  Report Type: 
  Country: None (occurrence: None)
  Receive Date: 20060228
  Receipt Date: 20050623
  Transmission Date: 20060701
  Serious: No
  Sender: FDA-Public Use
  Company Number: US-GLAXOSMITHKLINE-A0563938A

PATIENT
  Age: 28 Year
  Sex: Male
  Weight: 90.9 kg

DRUGS (2)
  1. LAMICTAL [Suspect]
     Indication: BIPOLAR DISORDER
     Dosage: 150MG PER DAY
     Route: 048
     Dates: start: 20050418, end: 20050623
  2. RISPERDAL [Concomitant]
     Dosage: 3MG PER DAY
     Dates: end: 20050623

REACTIONS (1)
  - RASH [None]
